FAERS Safety Report 6869616-7 (Version None)
Quarter: 2010Q3

REPORT INFORMATION
  Report Type: 
  Country: None (occurrence: None)
  Receive Date: 20100721
  Receipt Date: 20100706
  Transmission Date: 20110219
  Serious: Yes (Other)
  Sender: FDA-Public Use
  Company Number: 1000015081

PATIENT
  Age: 30 Year
  Sex: Female

DRUGS (5)
  1. ESCITALOPRAM [Suspect]
     Indication: DECREASED APPETITE
     Dosage: 20 MG (20 MG,1 IN 1 D), ORAL; 40 MG (20 MG,2 IN 1 D),ORAL
     Route: 048
     Dates: start: 20090212
  2. ESCITALOPRAM [Suspect]
     Indication: DEPRESSION
     Dosage: 20 MG (20 MG,1 IN 1 D), ORAL; 40 MG (20 MG,2 IN 1 D),ORAL
     Route: 048
     Dates: start: 20090212
  3. ESCITALOPRAM [Suspect]
     Indication: DECREASED APPETITE
     Dosage: 20 MG (20 MG,1 IN 1 D), ORAL
     Route: 048
     Dates: end: 20100705
  4. ESCITALOPRAM [Suspect]
     Indication: DEPRESSION
     Dosage: 20 MG (20 MG,1 IN 1 D), ORAL
     Route: 048
     Dates: end: 20100705
  5. ATARAX [Concomitant]

REACTIONS (4)
  - FEELING ABNORMAL [None]
  - MALAISE [None]
  - OFF LABEL USE [None]
  - OVERDOSE [None]
